FAERS Safety Report 23556248 (Version 1)
Quarter: 2024Q1

REPORT INFORMATION
  Report Type: Spontaneous
  Country: US (occurrence: US)
  Receive Date: 20240223
  Receipt Date: 20240223
  Transmission Date: 20240410
  Serious: No
  Sender: FDA-Public Use
  Company Number: US-009507513-2401USA014957

PATIENT
  Age: 27 Year
  Sex: Male

DRUGS (1)
  1. KEYTRUDA [Suspect]
     Active Substance: PEMBROLIZUMAB
     Dosage: UNK, Q3W
     Route: 042

REACTIONS (4)
  - Plasmacytosis [Unknown]
  - Eye pruritus [Unknown]
  - Abdominal pain [Unknown]
  - Product use in unapproved indication [Unknown]
